FAERS Safety Report 12047330 (Version 2)
Quarter: 2016Q1

REPORT INFORMATION
  Report Type: Report from Study
  Country: US (occurrence: US)
  Receive Date: 20160208
  Receipt Date: 20160311
  Transmission Date: 20160526
  Serious: Yes (Death, Hospitalization)
  Sender: FDA-Public Use
  Company Number: US-B.I. PHARMACEUTICALS,INC./RIDGEFIELD-2016-BI-07293PF

PATIENT
  Age: 66 Year
  Sex: Male
  Weight: 67.8 kg

DRUGS (6)
  1. PERSANTIN [Suspect]
     Active Substance: DIPYRIDAMOLE
     Indication: HYPERTENSION
     Dosage: 200 MG
     Route: 048
     Dates: start: 200703, end: 20091029
  2. SUNITINIB [Suspect]
     Active Substance: SUNITINIB
     Dosage: 37.5 MG
     Route: 065
     Dates: start: 200909, end: 20091029
  3. SIMVASTATIN. [Concomitant]
     Active Substance: SIMVASTATIN
     Indication: ATHEROSCLEROSIS PROPHYLAXIS
     Route: 048
     Dates: start: 200703, end: 20091115
  4. METOPROLOL. [Concomitant]
     Active Substance: METOPROLOL
     Indication: HYPERTENSION
     Route: 048
     Dates: start: 200703, end: 200703
  5. SUNITINIB [Suspect]
     Active Substance: SUNITINIB
     Indication: SMALL CELL LUNG CANCER EXTENSIVE STAGE
     Dosage: 150 MG
     Route: 065
     Dates: start: 20090916, end: 20090916
  6. ASPIRINE [Suspect]
     Active Substance: ASPIRIN
     Indication: ARTERIOSCLEROSIS
     Dosage: 80 MG
     Route: 048
     Dates: start: 200703, end: 20091029

REACTIONS (3)
  - Haemoptysis [Recovered/Resolved with Sequelae]
  - Pneumonia [Not Recovered/Not Resolved]
  - Pulmonary haemorrhage [Fatal]

NARRATIVE: CASE EVENT DATE: 20091029
